FAERS Safety Report 9869628 (Version 1)
Quarter: 2014Q1

REPORT INFORMATION
  Report Type: Spontaneous
  Country: US (occurrence: US)
  Receive Date: 20140205
  Receipt Date: 20140205
  Transmission Date: 20141002
  Serious: Yes (Hospitalization)
  Sender: FDA-Public Use
  Company Number: US-TEVA-459853USA

PATIENT
  Age: 84 Year
  Sex: Female

DRUGS (3)
  1. PROAIR HFA [Suspect]
     Route: 055
     Dates: start: 20131130, end: 20131220
  2. RYTHMOL [Suspect]
  3. CARVEDILOL [Suspect]
     Dosage: 6.25 MILLIGRAM DAILY;
     Route: 048

REACTIONS (2)
  - Bronchitis [Recovering/Resolving]
  - Asthma [Recovering/Resolving]
